FAERS Safety Report 20872481 (Version 3)
Quarter: 2022Q3

REPORT INFORMATION
  Report Type: Spontaneous
  Country: CO (occurrence: CO)
  Receive Date: 20220525
  Receipt Date: 20220713
  Transmission Date: 20221027
  Serious: No
  Sender: FDA-Public Use
  Company Number: CO-PFIZER INC-202200644207

PATIENT
  Age: 11 Year
  Sex: Male

DRUGS (1)
  1. GENOTROPIN [Suspect]
     Active Substance: SOMATROPIN
     Dosage: UNK
     Route: 058
     Dates: start: 2017

REACTIONS (4)
  - Device use issue [Unknown]
  - Wrong technique in device usage process [Unknown]
  - Device issue [Unknown]
  - Device occlusion [Unknown]

NARRATIVE: CASE EVENT DATE: 20220201
